FAERS Safety Report 8851303 (Version 5)
Quarter: 2015Q3

REPORT INFORMATION
  Report Type: Spontaneous
  Country: US (occurrence: US)
  Receive Date: 20121020
  Receipt Date: 20150921
  Transmission Date: 20151125
  Serious: Yes (Hospitalization, Other)
  Sender: FDA-Public Use
  Company Number: US-009507513-1210USA005111

PATIENT
  Sex: Female

DRUGS (2)
  1. FOSAMAX [Suspect]
     Active Substance: ALENDRONATE SODIUM
     Dosage: 70 MG, QW
     Route: 048
     Dates: end: 20061110
  2. FOSAMAX [Suspect]
     Active Substance: ALENDRONATE SODIUM
     Indication: OSTEOPOROSIS
     Dosage: UNK
     Route: 048
     Dates: start: 19951108, end: 2007

REACTIONS (10)
  - Femur fracture [Unknown]
  - Fracture nonunion [Unknown]
  - Device failure [Unknown]
  - Medical device removal [Unknown]
  - Medical device removal [Unknown]
  - Internal fixation of fracture [Unknown]
  - Intramedullary rod insertion [Unknown]
  - Femur fracture [Unknown]
  - Calcium deficiency [Unknown]
  - Femur fracture [Unknown]

NARRATIVE: CASE EVENT DATE: 20030201
